FAERS Safety Report 15770639 (Version 4)
Quarter: 2019Q1

REPORT INFORMATION
  Report Type: Spontaneous
  Country: JP (occurrence: JP)
  Receive Date: 20181228
  Receipt Date: 20190205
  Transmission Date: 20190417
  Serious: Yes (Hospitalization)
  Sender: FDA-Public Use
  Company Number: JP-OTSUKA-2018_040275

PATIENT
  Age: 98 Year
  Sex: Female

DRUGS (4)
  1. AZOSEMIDE [Concomitant]
     Active Substance: AZOSEMIDE
     Indication: PRODUCT USED FOR UNKNOWN INDICATION
     Dosage: 30 MG, QD, FROM AROUND 1 YEAR AGO
     Route: 048
  2. SAMSCA [Suspect]
     Active Substance: TOLVAPTAN
     Indication: CARDIAC FAILURE CHRONIC
     Dosage: 3.75 MG, QD
     Route: 048
     Dates: start: 20170128, end: 20181220
  3. SAMSCA [Suspect]
     Active Substance: TOLVAPTAN
     Dosage: 7.5 MG, QD
     Route: 048
     Dates: start: 20181221, end: 20181224
  4. AZOSEMIDE [Concomitant]
     Active Substance: AZOSEMIDE
     Dosage: 30 MG, QD, ADDED ON ADMISSION
     Route: 048
     Dates: start: 20181221

REACTIONS (5)
  - Cardiac failure chronic [Unknown]
  - Liver disorder [Recovered/Resolved]
  - Atrial fibrillation [Unknown]
  - Underdose [Unknown]
  - Liver disorder [Unknown]

NARRATIVE: CASE EVENT DATE: 2018
